FAERS Safety Report 13576248 (Version 1)
Quarter: 2017Q2

REPORT INFORMATION
  Report Type: Spontaneous
  Country: US (occurrence: US)
  Receive Date: 20170524
  Receipt Date: 20170524
  Transmission Date: 20170830
  Serious: No
  Sender: FDA-Public Use
  Company Number: None

PATIENT
  Age: 47 Year
  Sex: Female
  Weight: 90.72 kg

DRUGS (1)
  1. INVOKANA [Suspect]
     Active Substance: CANAGLIFLOZIN
     Indication: DIABETES MELLITUS
     Dosage: ONCE DAILY FOR THE FIRST MEAL MOUTH
     Route: 048
     Dates: start: 20170405, end: 20170410

REACTIONS (10)
  - Pain [None]
  - Dyspnoea [None]
  - Anal incontinence [None]
  - Feeling abnormal [None]
  - Palpitations [None]
  - Headache [None]
  - Paraesthesia [None]
  - Blood glucose increased [None]
  - Pyrexia [None]
  - Hypoaesthesia [None]

NARRATIVE: CASE EVENT DATE: 20170405
